FAERS Safety Report 19606128 (Version 3)
Quarter: 2021Q4

REPORT INFORMATION
  Report Type: Spontaneous
  Country: US (occurrence: US)
  Receive Date: 20210723
  Receipt Date: 20211102
  Transmission Date: 20220303
  Serious: Yes (Hospitalization)
  Sender: FDA-Public Use
  Company Number: US-CELGENE-USA-20210703554

PATIENT
  Age: 66 Year
  Sex: Female
  Weight: 52.210 kg

DRUGS (2)
  1. REVLIMID [Suspect]
     Active Substance: LENALIDOMIDE
     Indication: Plasma cell myeloma recurrent
     Dosage: 25 MILLIGRAM
     Route: 048
     Dates: start: 20200605
  2. REVLIMID [Suspect]
     Active Substance: LENALIDOMIDE
     Dosage: 10 MILLIGRAM
     Route: 048
     Dates: start: 202102

REACTIONS (5)
  - Adverse event [Unknown]
  - Illness [Unknown]
  - Anxiety [Unknown]
  - Cognitive disorder [Unknown]
  - Drug ineffective [Unknown]

NARRATIVE: CASE EVENT DATE: 20210701
